FAERS Safety Report 4811560-0 (Version None)
Quarter: 2005Q4

REPORT INFORMATION
  Report Type: 
  Country: None (occurrence: None)
  Receive Date: 20051025
  Receipt Date: 20051013
  Transmission Date: 20060501
  Serious: Yes (Hospitalization)
  Sender: FDA-Public Use
  Company Number: 2005143629

PATIENT
  Age: 44 Year
  Sex: Female

DRUGS (4)
  1. XANAX [Suspect]
     Indication: ANXIETY
     Dosage: 1.5 MG (0.5 MG, 3 IN 1 D), ORAL
     Route: 048
     Dates: start: 20010101, end: 20051015
  2. LITHICARB (LITHIUM CARBONATE) [Concomitant]
  3. TIMONIL (CARBAMAZEPINE) [Concomitant]
  4. LUCETAM (PIRACETAM) [Concomitant]

REACTIONS (2)
  - MALAISE [None]
  - PHARMACEUTICAL PRODUCT COMPLAINT [None]
